FAERS Safety Report 17540416 (Version 1)
Quarter: 2020Q1

REPORT INFORMATION
  Report Type: Spontaneous
  Country: US (occurrence: US)
  Receive Date: 20200313
  Receipt Date: 20200313
  Transmission Date: 20200409
  Serious: Yes (Other)
  Sender: FDA-Public Use
  Company Number: US-COOPERSURGICAL, INC.-US-2020CPS000701

PATIENT
  Age: 30 Year
  Sex: Female
  Weight: 109.75 kg

DRUGS (1)
  1. PARAGARD T 380A [Suspect]
     Active Substance: COPPER
     Indication: CONTRACEPTION
     Dosage: UNK
     Route: 015
     Dates: start: 200906

REACTIONS (6)
  - Embedded device [Not Recovered/Not Resolved]
  - Complication of device removal [Not Recovered/Not Resolved]
  - Gallbladder operation [Recovered/Resolved]
  - Foreign body in reproductive tract [Not Recovered/Not Resolved]
  - Device breakage [Not Recovered/Not Resolved]
  - Intentional device use issue [Recovered/Resolved]

NARRATIVE: CASE EVENT DATE: 201711
